FAERS Safety Report 7067800-3 (Version None)
Quarter: 2010Q4

REPORT INFORMATION
  Report Type: 
  Country: None (occurrence: None)
  Receive Date: 20101028
  Receipt Date: 20101015
  Transmission Date: 20110411
  Serious: Yes (Hospitalization)
  Sender: FDA-Public Use
  Company Number: PHHY2010US69543

PATIENT
  Sex: Female

DRUGS (1)
  1. RECLAST [Suspect]
     Dosage: UNK
     Dates: start: 20100915

REACTIONS (5)
  - ABDOMINAL DISCOMFORT [None]
  - BONE DISORDER [None]
  - DIZZINESS [None]
  - DYSPNOEA [None]
  - MALAISE [None]
